FAERS Safety Report 20226118 (Version 1)
Quarter: 2021Q4

REPORT INFORMATION
  Report Type: Report from Study
  Country: CA (occurrence: CA)
  Receive Date: 20211224
  Receipt Date: 20211224
  Transmission Date: 20220303
  Serious: Yes (Other)
  Sender: FDA-Public Use
  Company Number: CA-JNJFOC-20211247170

PATIENT
  Age: 20 Year
  Sex: Female

DRUGS (1)
  1. STELARA [Suspect]
     Active Substance: USTEKINUMAB
     Indication: Crohn^s disease
     Dosage: 1ST LOADING DOSE OF STELARA ON 20-DEC-2021.
     Route: 042
     Dates: start: 20211220

REACTIONS (3)
  - Blood pressure decreased [Recovering/Resolving]
  - Infusion related reaction [Recovering/Resolving]
  - Dizziness [Recovering/Resolving]

NARRATIVE: CASE EVENT DATE: 20211220
